FAERS Safety Report 12516974 (Version 1)
Quarter: 2016Q2

REPORT INFORMATION
  Report Type: Spontaneous
  Country: DE (occurrence: DE)
  Receive Date: 20160630
  Receipt Date: 20160630
  Transmission Date: 20160815
  Serious: Yes (Congenital Anomaly)
  Sender: FDA-Public Use
  Company Number: DE-ASTRAZENECA-2016SE69781

PATIENT
  Sex: Male

DRUGS (6)
  1. VENLAFAXINE RETARD [Suspect]
     Active Substance: VENLAFAXINE HYDROCHLORIDE
     Indication: DEPRESSION
     Route: 064
     Dates: start: 20150118, end: 20151022
  2. VENLAFAXINE RETARD [Suspect]
     Active Substance: VENLAFAXINE HYDROCHLORIDE
     Indication: DEPRESSION
     Route: 064
  3. SEROQUEL [Suspect]
     Active Substance: QUETIAPINE FUMARATE
     Indication: DEPRESSION
     Route: 064
     Dates: start: 20150118, end: 20151022
  4. VENLAFAXINE RETARD [Suspect]
     Active Substance: VENLAFAXINE HYDROCHLORIDE
     Indication: DEPRESSION
     Route: 064
  5. DAS GESUNDE PLUS [Concomitant]
     Indication: PROPHYLAXIS OF NEURAL TUBE DEFECT
     Route: 064
     Dates: start: 20150217, end: 20151020
  6. VENLAFAXINE RETARD [Suspect]
     Active Substance: VENLAFAXINE HYDROCHLORIDE
     Indication: DEPRESSION
     Route: 064

REACTIONS (3)
  - Penoscrotal fusion [Not Recovered/Not Resolved]
  - Caesarean section [None]
  - Breech presentation [None]

NARRATIVE: CASE EVENT DATE: 20151022
